FAERS Safety Report 8153344-4 (Version None)
Quarter: 2012Q1

REPORT INFORMATION
  Report Type: 
  Country: None (occurrence: None)
  Receive Date: 20120221
  Receipt Date: 20120206
  Transmission Date: 20120608
  Serious: Yes (Hospitalization, Disabling, Other)
  Sender: FDA-Public Use
  Company Number: BE-ROCHE-1037230

PATIENT
  Sex: Male
  Weight: 62 kg

DRUGS (11)
  1. BROMAZEPAM [Concomitant]
  2. DILTIAZEM HCL [Concomitant]
  3. PLAVIX [Concomitant]
  4. SIMVASTATIN [Concomitant]
  5. BETAHISTINE [Concomitant]
  6. LOSARTAN POTASSIUM [Concomitant]
  7. ENBREL [Concomitant]
     Route: 058
     Dates: start: 20111208, end: 20111216
  8. PERINDOPRIL ERBUMINE [Concomitant]
  9. ENBREL [Concomitant]
     Route: 058
     Dates: start: 20111216
  10. ACTEMRA [Suspect]
     Indication: RHEUMATOID ARTHRITIS
     Route: 042
     Dates: start: 20100623, end: 20111125
  11. ASPIRIN [Concomitant]

REACTIONS (6)
  - C-REACTIVE PROTEIN INCREASED [None]
  - GENERAL PHYSICAL HEALTH DETERIORATION [None]
  - ENDOCARDITIS [None]
  - SYNOVITIS [None]
  - CARDIAC MURMUR [None]
  - ARTHRALGIA [None]
